FAERS Safety Report 12467677 (Version 1)
Quarter: 2016Q2

REPORT INFORMATION
  Report Type: Spontaneous
  Country: US (occurrence: None)
  Receive Date: 20160614
  Receipt Date: 20160614
  Transmission Date: 20160815
  Serious: No
  Sender: FDA-Public Use
  Company Number: None

PATIENT

DRUGS (1)
  1. METHADONE HCL METHADONE HYDROCHLORIDE ROXANE LABORATORIES, INC. [Suspect]
     Active Substance: METHADONE HYDROCHLORIDE
     Dosage: SOLUTION ORAL 10MG/5ML 500 ML
     Route: 048

REACTIONS (3)
  - Drug dispensing error [None]
  - Incorrect dose administered [None]
  - Product label confusion [None]
